FAERS Safety Report 11398400 (Version 5)
Quarter: 2020Q3

REPORT INFORMATION
  Report Type: Spontaneous
  Country: PT (occurrence: PT)
  Receive Date: 20150820
  Receipt Date: 20200818
  Transmission Date: 20201102
  Serious: Yes (Hospitalization, Other)
  Sender: FDA-Public Use
  Company Number: PT-AUROBINDO-AUR-APL-2015-07322

PATIENT
  Age: 55 Year
  Sex: Female

DRUGS (1)
  1. PAROXETINE. [Suspect]
     Active Substance: PAROXETINE
     Indication: MAJOR DEPRESSION
     Dosage: 20 MILLIGRAM, DAILY
     Route: 065

REACTIONS (4)
  - Primary progressive multiple sclerosis [Recovered/Resolved with Sequelae]
  - Tic [Recovering/Resolving]
  - Excessive eye blinking [Recovering/Resolving]
  - Gait disturbance [Unknown]
